FAERS Safety Report 10144619 (Version 1)
Quarter: 2014Q2

REPORT INFORMATION
  Report Type: Spontaneous
  Country: US (occurrence: US)
  Receive Date: 20140430
  Receipt Date: 20140430
  Transmission Date: 20141212
  Serious: No
  Sender: FDA-Public Use
  Company Number: US-SANOFI-AVENTIS-2013SA048150

PATIENT
  Age: 66 Year
  Sex: Female
  Weight: 94 kg

DRUGS (1)
  1. LOVENOX [Suspect]
     Dosage: PATIENT WAS RECEIVING 100 MG
     Route: 051

REACTIONS (1)
  - Activated partial thromboplastin time prolonged [Not Recovered/Not Resolved]
